FAERS Safety Report 18369472 (Version 2)
Quarter: 2020Q4

REPORT INFORMATION
  Report Type: Spontaneous
  Country: RU (occurrence: RU)
  Receive Date: 20201012
  Receipt Date: 20201120
  Transmission Date: 20210114
  Serious: Yes (Other)
  Sender: FDA-Public Use
  Company Number: RU-BRISTOL-MYERS SQUIBB COMPANY-BMS-2020-073365

PATIENT
  Age: 45 Year
  Sex: Female

DRUGS (2)
  1. OPDIVO [Suspect]
     Active Substance: NIVOLUMAB
     Indication: MALIGNANT MELANOMA
     Dosage: 1 MILLIGRAM/KILOGRAM
     Route: 042
     Dates: start: 20200818
  2. YERVOY [Suspect]
     Active Substance: IPILIMUMAB
     Indication: MALIGNANT MELANOMA
     Dosage: 3 MILLIGRAM/KILOGRAM
     Route: 042
     Dates: start: 20200818

REACTIONS (5)
  - Hypoproteinaemia [Unknown]
  - Malignant neoplasm progression [Unknown]
  - Autoimmune hepatitis [Unknown]
  - Abdominal lymphadenopathy [Unknown]
  - Renal neoplasm [Unknown]

NARRATIVE: CASE EVENT DATE: 20200823
